FAERS Safety Report 7483380-2 (Version None)
Quarter: 2011Q2

REPORT INFORMATION
  Report Type: 
  Country: None (occurrence: None)
  Receive Date: 20110517
  Receipt Date: 20110406
  Transmission Date: 20111010
  Serious: Yes (Hospitalization, Other)
  Sender: FDA-Public Use
  Company Number: US-BAYER-2010-006305

PATIENT
  Sex: Female
  Weight: 99.773 kg

DRUGS (9)
  1. ALLEGRA [Concomitant]
  2. SINGULAIR [Concomitant]
     Indication: HYPERSENSITIVITY
  3. ZELNORM [Concomitant]
  4. DICYCLOMINE [Concomitant]
  5. YASMIN [Suspect]
     Indication: PRODUCT USED FOR UNKNOWN INDICATION
     Dosage: UNK
     Route: 048
     Dates: start: 20030501, end: 20071201
  6. METFORMIN HCL [Concomitant]
  7. SINGULAIR [Concomitant]
     Indication: ASTHMA
  8. NEXIUM [Concomitant]
     Indication: GASTRIC DISORDER
  9. SPIRONOLACTONE [Concomitant]

REACTIONS (5)
  - CHOLECYSTITIS CHRONIC [None]
  - CHOLELITHIASIS [None]
  - GALLBLADDER DISORDER [None]
  - INJURY [None]
  - PAIN [None]
